FAERS Safety Report 6047988-3 (Version None)
Quarter: 2009Q1

REPORT INFORMATION
  Report Type: 
  Country: None (occurrence: None)
  Receive Date: 20090123
  Receipt Date: 20090115
  Transmission Date: 20090719
  Serious: Yes (Other)
  Sender: FDA-Public Use
  Company Number: PHHY2008JP32470

PATIENT
  Sex: Male

DRUGS (5)
  1. LAMISIL [Suspect]
     Dosage: UNK
     Route: 048
     Dates: start: 20080806, end: 20081217
  2. MEVALOTIN [Suspect]
     Indication: HYPERCHOLESTEROLAEMIA
     Dosage: UNK
     Route: 048
     Dates: start: 20080806, end: 20081008
  3. DIOVAN [Concomitant]
     Dosage: 160 MG
     Route: 048
  4. KANZO-TO [Concomitant]
     Dosage: 7.5 MG
     Route: 048
  5. ADALAT CC [Concomitant]
     Dosage: 40 MG
     Route: 048

REACTIONS (4)
  - ALANINE AMINOTRANSFERASE INCREASED [None]
  - ASPARTATE AMINOTRANSFERASE INCREASED [None]
  - BLOOD CREATINE PHOSPHOKINASE INCREASED [None]
  - BLOOD LACTATE DEHYDROGENASE INCREASED [None]
